FAERS Safety Report 11271272 (Version 1)
Quarter: 2015Q3

REPORT INFORMATION
  Report Type: Spontaneous
  Country: HR (occurrence: HR)
  Receive Date: 20150714
  Receipt Date: 20150714
  Transmission Date: 20151125
  Serious: Yes (Death)
  Sender: FDA-Public Use
  Company Number: PHHY2015HR084073

PATIENT
  Age: 60 Year
  Sex: Male

DRUGS (1)
  1. METHOTREXATE [Suspect]
     Active Substance: METHOTREXATE
     Indication: NON-HODGKIN^S LYMPHOMA
     Dosage: 6800 MG, QD
     Route: 042
     Dates: start: 20150410

REACTIONS (2)
  - Hepatotoxicity [Fatal]
  - Pancytopenia [Fatal]

NARRATIVE: CASE EVENT DATE: 20150413
